FAERS Safety Report 14613223 (Version 1)
Quarter: 2018Q1

REPORT INFORMATION
  Report Type: Spontaneous
  Country: ES (occurrence: ES)
  Receive Date: 20180308
  Receipt Date: 20180308
  Transmission Date: 20180509
  Serious: Yes (Other)
  Sender: FDA-Public Use
  Company Number: ES-009507513-1803ESP000803

PATIENT
  Age: 17 Year
  Sex: Female

DRUGS (1)
  1. IMPLANON [Suspect]
     Active Substance: ETONOGESTREL
     Dosage: 1 DF, UNK
     Route: 058
     Dates: start: 20170421

REACTIONS (2)
  - Menometrorrhagia [Recovered/Resolved]
  - Iron deficiency [Recovered/Resolved]

NARRATIVE: CASE EVENT DATE: 201704
